FAERS Safety Report 5919045-5 (Version None)
Quarter: 2008Q4

REPORT INFORMATION
  Report Type: 
  Country: None (occurrence: None)
  Receive Date: 20081015
  Receipt Date: 20080930
  Transmission Date: 20090506
  Serious: Yes (Other)
  Sender: FDA-Public Use
  Company Number: FR-GENENTECH-269403

PATIENT
  Sex: Male

DRUGS (2)
  1. AVASTIN [Suspect]
     Indication: METASTASES TO LUNG
     Dosage: UNK
     Route: 042
     Dates: start: 20070801
  2. AVASTIN [Suspect]
     Dosage: 430 MG, Q15D
     Route: 042
     Dates: start: 20080201, end: 20080624

REACTIONS (1)
  - PERIARTHRITIS [None]
